FAERS Safety Report 7669285-2 (Version None)
Quarter: 2011Q3

REPORT INFORMATION
  Report Type: 
  Country: None (occurrence: None)
  Receive Date: 20110808
  Receipt Date: 20110801
  Transmission Date: 20111222
  Serious: Yes (Other)
  Sender: FDA-Public Use
  Company Number: PHHY2011US49845

PATIENT
  Sex: Male
  Weight: 81.633 kg

DRUGS (1)
  1. CLOZAPINE [Suspect]

REACTIONS (2)
  - LUNG NEOPLASM MALIGNANT [None]
  - WHITE BLOOD CELL COUNT DECREASED [None]
